FAERS Safety Report 16412314 (Version 3)
Quarter: 2020Q1

REPORT INFORMATION
  Report Type: Report from Study
  Country: FR (occurrence: FR)
  Receive Date: 20190610
  Receipt Date: 20200121
  Transmission Date: 20200409
  Serious: Yes (Death, Disabling, Other)
  Sender: FDA-Public Use
  Company Number: PHHY2019FR133383

PATIENT
  Sex: Male
  Weight: 70 kg

DRUGS (1)
  1. VOTRIENT [Suspect]
     Active Substance: PAZOPANIB HYDROCHLORIDE
     Indication: METASTATIC RENAL CELL CARCINOMA
     Dosage: 800 MG, QD
     Route: 048
     Dates: start: 20180210, end: 20180515

REACTIONS (3)
  - Asthenia [Recovered/Resolved]
  - Diarrhoea [Recovered/Resolved]
  - Death [Fatal]

NARRATIVE: CASE EVENT DATE: 20180222
